FAERS Safety Report 19823471 (Version 1)
Quarter: 2021Q3

REPORT INFORMATION
  Report Type: Spontaneous
  Country: US (occurrence: US)
  Receive Date: 20210913
  Receipt Date: 20210913
  Transmission Date: 20211014
  Serious: Yes (Hospitalization)
  Sender: FDA-Public Use
  Company Number: US-INCYTE CORPORATION-2021IN008112

PATIENT

DRUGS (2)
  1. JAKAFI [Suspect]
     Active Substance: RUXOLITINIB
     Indication: HEART TRANSPLANT
     Dosage: 5 MILLIGRAM, BID
     Route: 048
     Dates: start: 20210731
  2. JAKAFI [Suspect]
     Active Substance: RUXOLITINIB
     Indication: ROAD TRAFFIC ACCIDENT

REACTIONS (2)
  - Off label use [Unknown]
  - Gastrostomy tube site complication [Not Recovered/Not Resolved]
